FAERS Safety Report 6265601-7 (Version None)
Quarter: 2009Q3

REPORT INFORMATION
  Report Type: 
  Country: None (occurrence: None)
  Receive Date: 20090709
  Receipt Date: 20090709
  Transmission Date: 20100115
  Serious: No
  Sender: FDA-Public Use
  Company Number: None

PATIENT
  Age: 53 Year
  Sex: Female

DRUGS (1)
  1. AMLODIPINE [Suspect]
     Indication: RAYNAUD'S PHENOMENON
     Dosage: 5 MG ONCE DAILY PO
     Route: 048
     Dates: start: 20080304, end: 20080420

REACTIONS (2)
  - CONSTIPATION [None]
  - FAECAL INCONTINENCE [None]
